FAERS Safety Report 11126572 (Version 1)
Quarter: 2015Q2

REPORT INFORMATION
  Report Type: Spontaneous
  Country: US (occurrence: US)
  Receive Date: 20150520
  Receipt Date: 20150520
  Transmission Date: 20150821
  Serious: Yes (Other)
  Sender: FDA-Public Use
  Company Number: US-GE HEALTHCARE MEDICAL DIAGNOSTICS-OMPQ-PR-1505S-0765

PATIENT
  Age: 34 Year
  Sex: Female

DRUGS (7)
  1. TESSALON [Concomitant]
     Active Substance: BENZONATATE
     Indication: COUGH
  2. LOPRESSOR [Concomitant]
     Active Substance: METOPROLOL TARTRATE
  3. OMNIPAQUE [Suspect]
     Active Substance: IOHEXOL
     Indication: RENAL CYST
     Route: 042
     Dates: start: 20150430, end: 20150430
  4. OMNIPAQUE [Suspect]
     Active Substance: IOHEXOL
     Indication: DIAGNOSTIC PROCEDURE
  5. MOTRIN [Concomitant]
     Active Substance: IBUPROFEN
     Indication: HEADACHE
  6. ALBUTEROL. [Concomitant]
     Active Substance: ALBUTEROL
     Indication: ASTHMA
  7. FLOVENT [Concomitant]
     Active Substance: FLUTICASONE PROPIONATE
     Indication: ASTHMA

REACTIONS (1)
  - Contrast media allergy [Unknown]

NARRATIVE: CASE EVENT DATE: 20150430
